FAERS Safety Report 6359441-8 (Version None)
Quarter: 2009Q3

REPORT INFORMATION
  Report Type: 
  Country: None (occurrence: None)
  Receive Date: 20090917
  Receipt Date: 20090903
  Transmission Date: 20100115
  Serious: Yes (Other)
  Sender: FDA-Public Use
  Company Number: BR-PFIZER INC-2009264046

PATIENT
  Age: 75 Year

DRUGS (6)
  1. LONITEN [Suspect]
     Indication: HYPERTENSION
     Dosage: 10 MG, 2X/DAY
     Route: 048
     Dates: start: 20060101
  2. INSULIN HUMAN [Concomitant]
     Indication: DIABETES MELLITUS
     Dosage: UNK
     Dates: start: 20060101
  3. AAS [Concomitant]
     Dosage: UNK
  4. CALCIUM CARBONATE [Concomitant]
     Dosage: UNK
     Dates: start: 20070101
  5. IRON [Concomitant]
     Dosage: UNK
     Dates: start: 20070101
  6. ERYTHROPOIETIN HUMAN [Concomitant]
     Dosage: UNK
     Dates: start: 20070101

REACTIONS (2)
  - HAEMODIALYSIS [None]
  - PRURITUS [None]
